FAERS Safety Report 23526049 (Version 1)
Quarter: 2024Q1

REPORT INFORMATION
  Report Type: Spontaneous
  Country: GB (occurrence: GB)
  Receive Date: 20240215
  Receipt Date: 20240215
  Transmission Date: 20240410
  Serious: Yes (Other)
  Sender: FDA-Public Use
  Company Number: GB-MHRA-TPP26040061C10366166YC1706551963805

PATIENT
  Age: 75 Year
  Sex: Male
  Weight: 70 kg

DRUGS (11)
  1. AMOXICILLIN [Suspect]
     Active Substance: AMOXICILLIN
     Indication: Product used for unknown indication
     Dosage: UNK
     Route: 065
  2. AMLODIPINE [Concomitant]
     Active Substance: AMLODIPINE BESYLATE
     Indication: Product used for unknown indication
     Dosage: 1 DOSAGE FORM, ONCE A DAY
     Route: 065
     Dates: start: 20220812
  3. ASPIRIN [Concomitant]
     Active Substance: ASPIRIN
     Indication: Product used for unknown indication
     Dosage: 1 DOSAGE FORM, ONCE A DAY
     Route: 065
     Dates: start: 20220812
  4. ATORVASTATIN [Concomitant]
     Active Substance: ATORVASTATIN
     Indication: Product used for unknown indication
     Dosage: 1 DOSAGE FORM, ONCE A DAY NIGHT
     Route: 065
     Dates: start: 20220812
  5. BISOPROLOL [Concomitant]
     Active Substance: BISOPROLOL\BISOPROLOL FUMARATE
     Indication: Product used for unknown indication
     Dosage: 1 DOSAGE FORM, ONCE A DAY
     Route: 065
     Dates: start: 20220812
  6. DOXYCYCLINE [Concomitant]
     Active Substance: DOXYCYCLINE
     Indication: Product used for unknown indication
     Dosage: TAKE TWO IMMEDIATELY THEN ONE DAILY
     Route: 065
     Dates: start: 20231030, end: 20231106
  7. FLUOROURACIL [Concomitant]
     Active Substance: FLUOROURACIL
     Indication: Product used for unknown indication
     Dosage: APPLY ONCE TO TWICE DAILY FOR 3-4 WEEKS
     Route: 065
     Dates: start: 20240129
  8. LATANOPROST [Concomitant]
     Active Substance: LATANOPROST
     Indication: Product used for unknown indication
     Dosage: 1 GTT DROPS, ONCE A DAY, EYE(S) IN THE EVENING
     Route: 065
     Dates: start: 20220812
  9. NITROFURANTOIN [Concomitant]
     Active Substance: NITROFURANTOIN
     Indication: Product used for unknown indication
     Dosage: 1 DOSAGE FORM, TWO TIMES A DAY, FOR 7 DAYS, TO TRE.
     Route: 065
     Dates: start: 20240129
  10. Oilatum [Concomitant]
     Indication: Product used for unknown indication
     Dosage: APPLY WHEN REQUIRED
     Route: 065
     Dates: start: 20220812
  11. TIMOLOL [Concomitant]
     Active Substance: TIMOLOL
     Indication: Product used for unknown indication
     Dosage: 1 GTT DROPS, ONCE A DAY
     Route: 065
     Dates: start: 20240108

REACTIONS (3)
  - Peripheral swelling [Unknown]
  - Rash [Unknown]
  - Swelling face [Unknown]
